FAERS Safety Report 5640066-4 (Version None)
Quarter: 2008Q1

REPORT INFORMATION
  Report Type: 
  Country: None (occurrence: None)
  Receive Date: 20080226
  Receipt Date: 20080226
  Transmission Date: 20080703
  Serious: Yes (Hospitalization)
  Sender: FDA-Public Use
  Company Number: None

PATIENT
  Sex: Female
  Weight: 45 kg

DRUGS (3)
  1. CISPLATIN [Suspect]
     Dosage: 158 MG
  2. DOXORUBICIN HYDROCHLORIDE [Suspect]
     Dosage: 99 MG
  3. METHOTREXATE [Suspect]
     Dosage: 34 G

REACTIONS (14)
  - ABDOMINAL PAIN [None]
  - CARDIAC ARREST [None]
  - CARDIAC TAMPONADE [None]
  - CARDIOGENIC SHOCK [None]
  - DEHYDRATION [None]
  - DIARRHOEA [None]
  - GASTROENTERITIS [None]
  - HYPOTENSION [None]
  - NEUTROPENIA [None]
  - ORAL INTAKE REDUCED [None]
  - PERICARDIAL EFFUSION [None]
  - PROCTALGIA [None]
  - PYREXIA [None]
  - SEPTIC SHOCK [None]
